FAERS Safety Report 18079188 (Version 1)
Quarter: 2020Q3

REPORT INFORMATION
  Report Type: Spontaneous
  Country: US (occurrence: US)
  Receive Date: 20200727
  Receipt Date: 20200727
  Transmission Date: 20201103
  Serious: No
  Sender: FDA-Public Use
  Company Number: None

PATIENT
  Age: 53 Year
  Sex: Male
  Weight: 83.25 kg

DRUGS (1)
  1. DEPAKOTE [Suspect]
     Active Substance: DIVALPROEX SODIUM
     Indication: BIPOLAR DISORDER
     Dosage: ?          QUANTITY:3 TABLET(S);?
     Route: 048
     Dates: start: 20190213, end: 20200701

REACTIONS (3)
  - Pain [None]
  - Alopecia [None]
  - Hair texture abnormal [None]

NARRATIVE: CASE EVENT DATE: 20200414
